FAERS Safety Report 21849091 (Version 1)
Quarter: 2023Q1

REPORT INFORMATION
  Report Type: Spontaneous
  Country: US (occurrence: US)
  Receive Date: 20230111
  Receipt Date: 20230111
  Transmission Date: 20230418
  Serious: Yes (Other)
  Sender: FDA-Public Use
  Company Number: US-PFIZER INC-202300011503

PATIENT
  Age: 31 Year
  Sex: Female

DRUGS (9)
  1. PAXLOVID [Interacting]
     Active Substance: NIRMATRELVIR\RITONAVIR
     Indication: COVID-19 treatment
     Dosage: TAKEN TWO DOSES OF IT
     Route: 048
     Dates: start: 20230104, end: 20230106
  2. CENOBAMATE [Interacting]
     Active Substance: CENOBAMATE
     Dosage: UNK
  3. ONFI [Interacting]
     Active Substance: CLOBAZAM
     Dosage: UNK
  4. DOXYCYCLINE [Concomitant]
     Active Substance: DOXYCYCLINE
  5. FLUOXETINE [Concomitant]
     Active Substance: FLUOXETINE HYDROCHLORIDE
  6. LACOSAMIDE [Concomitant]
     Active Substance: LACOSAMIDE
  7. LORAZEPAM [Concomitant]
     Active Substance: LORAZEPAM
  8. OXCARBAZEPINE [Concomitant]
     Active Substance: OXCARBAZEPINE
  9. ZONISAMIDE [Concomitant]
     Active Substance: ZONISAMIDE

REACTIONS (11)
  - Confusional state [Recovered/Resolved]
  - Muscle disorder [Recovered/Resolved]
  - Gait disturbance [Recovered/Resolved]
  - Somnolence [Recovered/Resolved]
  - Toxicity to various agents [Recovered/Resolved]
  - Epistaxis [Recovered/Resolved]
  - Drug interaction [Recovered/Resolved]
  - Fall [Recovered/Resolved]
  - Nausea [Recovered/Resolved]
  - Secretion discharge [Recovered/Resolved]
  - Speech disorder [Recovered/Resolved]

NARRATIVE: CASE EVENT DATE: 20230108
